FAERS Safety Report 7082420-2 (Version None)
Quarter: 2010Q4

REPORT INFORMATION
  Report Type: 
  Country: None (occurrence: None)
  Receive Date: 20101104
  Receipt Date: 20101026
  Transmission Date: 20110411
  Serious: No
  Sender: FDA-Public Use
  Company Number: US-BIOGENIDEC-2010BI038025

PATIENT
  Age: 34 Year
  Sex: Female

DRUGS (1)
  1. TYSABRI [Suspect]
     Indication: MULTIPLE SCLEROSIS
     Route: 042
     Dates: start: 20100603, end: 20100830

REACTIONS (7)
  - CRYING [None]
  - EAR DISCOMFORT [None]
  - ERYTHEMA [None]
  - FLUSHING [None]
  - MALAISE [None]
  - MEMORY IMPAIRMENT [None]
  - VOMITING [None]
